FAERS Safety Report 23894811 (Version 1)
Quarter: 2024Q2

REPORT INFORMATION
  Report Type: Spontaneous
  Country: TR (occurrence: TR)
  Receive Date: 20240524
  Receipt Date: 20240524
  Transmission Date: 20240716
  Serious: Yes (Hospitalization, Other)
  Sender: FDA-Public Use
  Company Number: TR-MLMSERVICE-20240508-PI050887-00285-2

PATIENT
  Age: 7 Year
  Sex: Female

DRUGS (5)
  1. RISPERDAL [Suspect]
     Active Substance: RISPERIDONE
     Indication: Acute post asthmatic amyotrophy
     Dosage: 0.25 MG/DAY AND THEN 0.75 MG/DAY
     Route: 065
  2. RISPERDAL [Suspect]
     Active Substance: RISPERIDONE
     Route: 065
  3. RISPERDAL [Suspect]
     Active Substance: RISPERIDONE
     Dosage: TABLESPOON
     Route: 065
  4. FLUOXETINE [Suspect]
     Active Substance: FLUOXETINE HYDROCHLORIDE
     Indication: Anxiety
     Route: 065
  5. CLONAZEPAM [Concomitant]
     Active Substance: CLONAZEPAM
     Indication: Anxiety

REACTIONS (4)
  - Dystonia [Unknown]
  - Accidental exposure to product by child [Unknown]
  - Drug ineffective [Unknown]
  - Off label use [Unknown]
